FAERS Safety Report 7380312-2 (Version None)
Quarter: 2011Q1

REPORT INFORMATION
  Report Type: 
  Country: None (occurrence: None)
  Receive Date: 20110329
  Receipt Date: 20110321
  Transmission Date: 20110831
  Serious: Yes (Other)
  Sender: FDA-Public Use
  Company Number: US-B.I. PHARMACEUTICALS,INC./RIDGEFIELD-2011-BP-08701BP

PATIENT
  Age: 76 Year
  Sex: Female

DRUGS (7)
  1. PREMARIN [Concomitant]
     Indication: BLOOD OESTROGEN
  2. PRADAXA [Suspect]
     Indication: CEREBROVASCULAR ACCIDENT PROPHYLAXIS
     Dosage: 300 MG
     Route: 048
     Dates: start: 20110301, end: 20110318
  3. LEVOTHYROXINE [Concomitant]
     Indication: HYPOTHYROIDISM
  4. AMLODIPINE BESYLATE [Concomitant]
     Dosage: 5 MG
  5. SOTALOL HCL [Concomitant]
     Indication: HYPERTENSION
  6. HYDROCHLOROTHIAZIDE [Concomitant]
     Indication: OEDEMA PERIPHERAL
  7. PLAVIX [Concomitant]

REACTIONS (7)
  - HEART RATE INCREASED [None]
  - TRANSIENT ISCHAEMIC ATTACK [None]
  - INSOMNIA [None]
  - NIGHT SWEATS [None]
  - FEELING ABNORMAL [None]
  - HYPERTENSION [None]
  - GAIT DISTURBANCE [None]
